FAERS Safety Report 6976338-0 (Version None)
Quarter: 2010Q3

REPORT INFORMATION
  Report Type: 
  Country: None (occurrence: None)
  Receive Date: 20100910
  Receipt Date: 20100901
  Transmission Date: 20110219
  Serious: Yes (Hospitalization)
  Sender: FDA-Public Use
  Company Number: US-ASTRAZENECA-2010SE41175

PATIENT
  Age: 56 Year
  Sex: Female

DRUGS (7)
  1. NEXIUM [Suspect]
     Indication: HIATUS HERNIA
     Route: 048
     Dates: start: 20020101
  2. LORAZEPAM [Concomitant]
     Indication: ANXIETY
     Route: 048
  3. ACIDOPHILUS [Concomitant]
     Route: 048
  4. NORCO [Concomitant]
     Indication: PAIN
     Dosage: 10/325 MG DAILY
     Route: 048
  5. PRE-NATAL VITAMINS [Concomitant]
     Route: 048
  6. TRAZODONE HCL [Concomitant]
     Indication: INSOMNIA
     Route: 048
  7. ASCORBIC ACID [Concomitant]
     Route: 048

REACTIONS (7)
  - ABDOMINAL PAIN UPPER [None]
  - ABSCESS [None]
  - ARTHROPOD BITE [None]
  - DRUG INEFFECTIVE [None]
  - DYSPHAGIA [None]
  - INFECTION [None]
  - LYMPHOEDEMA [None]
